FAERS Safety Report 7413044-2 (Version None)
Quarter: 2011Q2

REPORT INFORMATION
  Report Type: 
  Country: None (occurrence: None)
  Receive Date: 20110408
  Receipt Date: 20110408
  Transmission Date: 20111010
  Serious: Yes (Death, Life-Threatening, Hospitalization, Other)
  Sender: FDA-Public Use
  Company Number: None

PATIENT
  Age: 65 Year
  Sex: Male
  Weight: 60 kg

DRUGS (2)
  1. DIETHYLCARBAMAZINE [Suspect]
     Indication: PROPHYLAXIS
     Dosage: 50MG 3 TABLETS SINGLE PO
     Route: 048
     Dates: start: 20110310, end: 20110402
  2. DIETHYLCARBAMAZINE [Suspect]
     Indication: FILARIASIS
     Dosage: 50MG 3 TABLETS SINGLE PO
     Route: 048
     Dates: start: 20110310, end: 20110402

REACTIONS (2)
  - DEATH [None]
  - TOXICITY TO VARIOUS AGENTS [None]
